FAERS Safety Report 7309378-2 (Version None)
Quarter: 2011Q1

REPORT INFORMATION
  Report Type: 
  Country: None (occurrence: None)
  Receive Date: 20110223
  Receipt Date: 20110214
  Transmission Date: 20110831
  Serious: Yes (Hospitalization)
  Sender: FDA-Public Use
  Company Number: US-ASTRAZENECA-2011SE08516

PATIENT
  Age: 57 Year
  Sex: Female

DRUGS (2)
  1. ARIMIDEX [Suspect]
     Indication: BREAST CANCER
     Route: 048
  2. SYNTHROID [Concomitant]

REACTIONS (8)
  - CARTILAGE INJURY [None]
  - TOOTH INFECTION [None]
  - EXOSTOSIS [None]
  - WHEELCHAIR USER [None]
  - HIP ARTHROPLASTY [None]
  - KNEE ARTHROPLASTY [None]
  - DEVICE FAILURE [None]
  - INTERVERTEBRAL DISC PROTRUSION [None]
